FAERS Safety Report 6216245-4 (Version None)
Quarter: 2009Q2

REPORT INFORMATION
  Report Type: 
  Country: None (occurrence: None)
  Receive Date: 20090605
  Receipt Date: 20090526
  Transmission Date: 20091009
  Serious: Yes (Hospitalization)
  Sender: FDA-Public Use
  Company Number: A0788876A

PATIENT
  Age: 71 Year
  Sex: Female
  Weight: 104.5 kg

DRUGS (1)
  1. AVANDIA [Suspect]
     Route: 048
     Dates: start: 20030101, end: 20070101

REACTIONS (2)
  - CEREBROVASCULAR ACCIDENT [None]
  - SWELLING [None]
